FAERS Safety Report 16180085 (Version 1)
Quarter: 2019Q2

REPORT INFORMATION
  Report Type: Spontaneous
  Country: US (occurrence: US)
  Receive Date: 20190409
  Receipt Date: 20190409
  Transmission Date: 20190711
  Serious: Yes (Other)
  Sender: FDA-Public Use
  Company Number: None

PATIENT
  Age: 58 Year
  Sex: Female
  Weight: 42.28 kg

DRUGS (11)
  1. SENNA [Concomitant]
     Active Substance: SENNA LEAF\SENNOSIDES\SENNOSIDES A AND B
  2. VENTOLIN [Concomitant]
     Active Substance: ALBUTEROL SULFATE
  3. XGEVA [Concomitant]
     Active Substance: DENOSUMAB
  4. IBRANCE [Suspect]
     Active Substance: PALBOCICLIB
     Indication: BREAST CANCER
     Route: 048
     Dates: start: 20180913
  5. METFORMIN [Concomitant]
     Active Substance: METFORMIN HYDROCHLORIDE
  6. FASLODEX [Concomitant]
     Active Substance: FULVESTRANT
  7. ASPIRIN. [Concomitant]
     Active Substance: ASPIRIN
  8. IBUPROFEN. [Concomitant]
     Active Substance: IBUPROFEN
  9. LANTUS [Concomitant]
     Active Substance: INSULIN GLARGINE
  10. ATORVASTATIN [Concomitant]
     Active Substance: ATORVASTATIN
  11. LISINOPRIL. [Concomitant]
     Active Substance: LISINOPRIL

REACTIONS (1)
  - Thrombocytopenia [None]
